FAERS Safety Report 5779787-1 (Version None)
Quarter: 2008Q2

REPORT INFORMATION
  Report Type: 
  Country: None (occurrence: None)
  Receive Date: 20080618
  Receipt Date: 20080613
  Transmission Date: 20081010
  Serious: Yes (Hospitalization, Other)
  Sender: FDA-Public Use
  Company Number: 2008S1009739

PATIENT
  Age: 69 Year
  Sex: Male

DRUGS (3)
  1. MELOXICAM [Suspect]
     Indication: PAIN
     Dosage: 15 MG; DAILY ORAL
     Route: 048
     Dates: start: 20080514, end: 20080501
  2. LISINOPRIL [Concomitant]
  3. ASCORBIC ACID [Concomitant]

REACTIONS (2)
  - HYPOAESTHESIA [None]
  - OEDEMA PERIPHERAL [None]
